FAERS Safety Report 6756107-7 (Version None)
Quarter: 2010Q2

REPORT INFORMATION
  Report Type: 
  Country: None (occurrence: None)
  Receive Date: 20100524
  Receipt Date: 20100125
  Transmission Date: 20101027
  Serious: No
  Sender: FDA-Public Use
  Company Number: 005407

PATIENT
  Sex: Female
  Weight: 95.2554 kg

DRUGS (2)
  1. CIMZIA [Suspect]
     Indication: CROHN'S DISEASE
     Dosage: (400 MG 1X/MONTH, MONTHLY SUBCUTANEOUS)
     Route: 058
     Dates: start: 20090601
  2. FENTANYL [Concomitant]

REACTIONS (6)
  - DIZZINESS [None]
  - FATIGUE [None]
  - HAEMORRHAGIC DIATHESIS [None]
  - RASH [None]
  - UPPER RESPIRATORY TRACT INFECTION [None]
  - WOUND INFECTION [None]
